FAERS Safety Report 5091730-X (Version None)
Quarter: 2006Q3

REPORT INFORMATION
  Report Type: 
  Country: None (occurrence: None)
  Receive Date: 20060824
  Receipt Date: 20060819
  Transmission Date: 20061208
  Serious: Yes (Other)
  Sender: FDA-Public Use
  Company Number: 2006100209

PATIENT
  Age: 21 Year
  Sex: Female
  Weight: 79.3795 kg

DRUGS (1)
  1. SUDAFED COLD AND COUGH EXTRA STRENGTH (PARACETAMOL, PSEUDOEPHEDRINE, D [Suspect]
     Indication: SINUS HEADACHE
     Dosage: 1 CAPLET ONCE, ORAL
     Route: 048
     Dates: start: 20060817, end: 20060817

REACTIONS (3)
  - ANXIETY [None]
  - DEPRESSION SUICIDAL [None]
  - FEELING ABNORMAL [None]
